FAERS Safety Report 20444099 (Version 1)
Quarter: 2022Q1

REPORT INFORMATION
  Report Type: Spontaneous
  Country: CN (occurrence: CN)
  Receive Date: 20220208
  Receipt Date: 20220208
  Transmission Date: 20220423
  Serious: Yes (Other)
  Sender: FDA-Public Use
  Company Number: CN-PFIZER INC-202200157686

PATIENT
  Age: 32 Year
  Sex: Female
  Weight: 79 kg

DRUGS (3)
  1. CARBOPROST TROMETHAMINE [Suspect]
     Active Substance: CARBOPROST TROMETHAMINE
     Indication: Uterine hypotonus
     Dosage: 250.000 UG, 1X/DAY
     Route: 030
     Dates: start: 20220112, end: 20220112
  2. SODIUM CHLORIDE [Concomitant]
     Active Substance: SODIUM CHLORIDE
     Indication: Uterine hypotonus
     Dosage: 500.000 ML, 1X/DAY
     Route: 041
     Dates: start: 20220112, end: 20220112
  3. OXYTOCIN [Concomitant]
     Active Substance: OXYTOCIN
     Indication: Uterine hypotonus
     Dosage: 20.000 IU, 1X/DAY
     Route: 041
     Dates: start: 20220112, end: 20220112

REACTIONS (2)
  - Abdominal pain upper [Recovering/Resolving]
  - Vomiting [Recovering/Resolving]

NARRATIVE: CASE EVENT DATE: 20220112
